FAERS Safety Report 6703590-9 (Version None)
Quarter: 2010Q2

REPORT INFORMATION
  Report Type: 
  Country: None (occurrence: None)
  Receive Date: 20100430
  Receipt Date: 20100422
  Transmission Date: 20101027
  Serious: Yes (Hospitalization, Other)
  Sender: FDA-Public Use
  Company Number: NA-BRISTOL-MYERS SQUIBB COMPANY-15052731

PATIENT
  Age: 39 Year
  Sex: Male

DRUGS (1)
  1. ERBITUX [Suspect]
     Dosage: 2 MG/ML 08JAN-30MAR2010;80DAYS RESTRTED ON 12APR2010-ONG
     Route: 042
     Dates: start: 20100108

REACTIONS (2)
  - FISTULA [None]
  - HAEMORRHAGE [None]
